FAERS Safety Report 4929380-5 (Version None)
Quarter: 2006Q1

REPORT INFORMATION
  Report Type: 
  Country: None (occurrence: None)
  Receive Date: 20060224
  Receipt Date: 20060214
  Transmission Date: 20060701
  Serious: Yes (Hospitalization)
  Sender: FDA-Public Use
  Company Number: HQWYE831216FEB06

PATIENT
  Age: 30 Year
  Sex: Female

DRUGS (7)
  1. RAPAMUNE [Suspect]
     Indication: PROPHYLAXIS AGAINST TRANSPLANT REJECTION
     Dosage: ^5/6 MG ONCE DAILY^ ORAL
     Route: 048
     Dates: start: 20021022
  2. SPIRONOLACTONE [Concomitant]
  3. CILAZAPRIL (CILAZAPRIL) [Concomitant]
  4. KALIUM CHLORATUM SPOFA (POTASSIUM CHLORIDE) [Concomitant]
  5. CALCIUM CARBONATE (CALCIUM CARBONATE) [Concomitant]
  6. CALCIFEDIOL (CALCIFEDIOL) [Concomitant]
  7. RANITIDINE [Concomitant]

REACTIONS (7)
  - ASTHENIA [None]
  - COMPLICATIONS OF TRANSPLANTED KIDNEY [None]
  - DISEASE PROGRESSION [None]
  - DRUG INEFFECTIVE [None]
  - DYSPNOEA [None]
  - KIDNEY TRANSPLANT REJECTION [None]
  - RENAL IMPAIRMENT [None]
